FAERS Safety Report 4682377-5 (Version None)
Quarter: 2005Q2

REPORT INFORMATION
  Report Type: 
  Country: None (occurrence: None)
  Receive Date: 20050602
  Receipt Date: 20050602
  Transmission Date: 20051028
  Serious: Yes (Other)
  Sender: FDA-Public Use
  Company Number: None

PATIENT
  Age: 72 Year
  Sex: Female
  Weight: 61.2356 kg

DRUGS (2)
  1. NIASPAN [Suspect]
     Indication: HYPERLIPIDAEMIA
     Dosage: 1000 MGM P.O. 1 Q.H.S.
     Route: 048
     Dates: start: 20050416
  2. ASPIRIN [Suspect]
     Dosage: 325 1/2 HR AC

REACTIONS (2)
  - RASH ERYTHEMATOUS [None]
  - RASH PRURITIC [None]
